FAERS Safety Report 10466453 (Version 1)
Quarter: 2014Q3

REPORT INFORMATION
  Report Type: Report from Study
  Country: US (occurrence: US)
  Receive Date: 20140922
  Receipt Date: 20140922
  Transmission Date: 20150326
  Serious: Yes (Other)
  Sender: FDA-Public Use
  Company Number: US-ROCHE-1464260

PATIENT

DRUGS (5)
  1. SILDENAFIL [Concomitant]
     Active Substance: SILDENAFIL
     Indication: FIBRINOUS BRONCHITIS
  2. MUCOLYTICS [Concomitant]
     Indication: FIBRINOUS BRONCHITIS
  3. ALTEPLASE [Suspect]
     Active Substance: ALTEPLASE
     Indication: FIBRINOUS BRONCHITIS
     Dosage: 2 TO 4 TIMES DAILY INHATION.
     Route: 050
  4. ASPIRIN. [Suspect]
     Active Substance: ASPIRIN
     Indication: PRODUCT USED FOR UNKNOWN INDICATION
     Route: 065
  5. WARFARIN [Suspect]
     Active Substance: WARFARIN
     Indication: PRODUCT USED FOR UNKNOWN INDICATION
     Route: 065

REACTIONS (3)
  - Epistaxis [Recovered/Resolved]
  - Purpura [Recovered/Resolved]
  - Coagulopathy [Recovered/Resolved]
